FAERS Safety Report 7293867-3 (Version None)
Quarter: 2011Q1

REPORT INFORMATION
  Report Type: 
  Country: None (occurrence: None)
  Receive Date: 20110203
  Receipt Date: 20110119
  Transmission Date: 20110831
  Serious: Yes (Hospitalization, Other)
  Sender: FDA-Public Use
  Company Number: 008823

PATIENT
  Weight: 62 kg

DRUGS (8)
  1. LACOSAMIDE [Suspect]
     Indication: CONVULSION
     Dosage: SEE IMAGE
     Route: 042
     Dates: start: 20100219
  2. LACOSAMIDE [Suspect]
     Indication: CONVULSION
     Dosage: SEE IMAGE
     Route: 042
     Dates: start: 20100219, end: 20100220
  3. LACOSAMIDE [Suspect]
     Indication: CONVULSION
     Dosage: SEE IMAGE
     Route: 042
     Dates: start: 20100308, end: 20100308
  4. LACOSAMIDE [Suspect]
     Indication: CONVULSION
     Dosage: SEE IMAGE
     Route: 042
     Dates: start: 20100309, end: 20100101
  5. LACOSAMIDE [Suspect]
     Indication: CONVULSION
     Dosage: SEE IMAGE
     Route: 042
     Dates: start: 20100221
  6. LACOSAMIDE [Suspect]
     Indication: CONVULSION
     Dosage: SEE IMAGE
     Route: 042
     Dates: start: 20100101
  7. LEVETIRACETAM [Concomitant]
  8. TRILEPTAL [Suspect]
     Indication: CONVULSION
     Dosage: SEE IMAGE
     Dates: start: 20070101

REACTIONS (8)
  - VOMITING [None]
  - ATAXIA [None]
  - HEART RATE IRREGULAR [None]
  - SINUS BRADYCARDIA [None]
  - NAUSEA [None]
  - DIZZINESS [None]
  - CRYING [None]
  - STATUS EPILEPTICUS [None]
